FAERS Safety Report 26006931 (Version 2)
Quarter: 2025Q4

REPORT INFORMATION
  Report Type: Spontaneous
  Country: CA (occurrence: CA)
  Receive Date: 20251106
  Receipt Date: 20251231
  Transmission Date: 20260117
  Serious: Yes (Other)
  Sender: PFIZER
  Company Number: CA-PFIZER INC-202500217117

PATIENT
  Age: 33 Year
  Sex: Female

DRUGS (6)
  1. RUXIENCE [Suspect]
     Active Substance: RITUXIMAB-PVVR
     Indication: Granulomatosis with polyangiitis
     Dosage: 1000 MG X 2 DOSE
     Route: 042
     Dates: start: 20230111, end: 20230126
  2. RUXIENCE [Suspect]
     Active Substance: RITUXIMAB-PVVR
     Dosage: 1000 MG X 2 DOSE
     Route: 042
     Dates: start: 20240124, end: 20240213
  3. RUXIENCE [Suspect]
     Active Substance: RITUXIMAB-PVVR
     Dosage: 1000 MG X 2 DOSE
     Route: 042
     Dates: start: 20240731, end: 20240813
  4. RUXIENCE [Suspect]
     Active Substance: RITUXIMAB-PVVR
     Dosage: 1000 MG X 2 DOSE ( FIRST DOSE RECEIVED AT THE HOSPITAL)
     Route: 042
     Dates: start: 20241106, end: 20241127
  5. RUXIENCE [Suspect]
     Active Substance: RITUXIMAB-PVVR
     Dosage: 1000 MG X 2 DOSE
     Route: 042
     Dates: start: 20250428, end: 20250512
  6. RUXIENCE [Suspect]
     Active Substance: RITUXIMAB-PVVR
     Dosage: 500 MG X 2 DOSE
     Route: 042
     Dates: start: 20250826, end: 20250909

REACTIONS (2)
  - Diabetes mellitus [Unknown]
  - Colitis [Unknown]
